FAERS Safety Report 4889572-0 (Version None)
Quarter: 2006Q1

REPORT INFORMATION
  Report Type: 
  Country: None (occurrence: None)
  Receive Date: 20060120
  Receipt Date: 20060110
  Transmission Date: 20060701
  Serious: Yes (Hospitalization, Disabling, Other)
  Sender: FDA-Public Use
  Company Number: 2005161026

PATIENT
  Age: 67 Year
  Sex: Female

DRUGS (7)
  1. LYRICA [Suspect]
     Indication: NEURALGIA
     Dosage: ORAL
     Route: 048
     Dates: start: 20050531, end: 20050621
  2. GABAPENTIN [Suspect]
     Indication: NEURALGIA
  3. BENDROFLUAZIDE (BENDROFLUMETHIAZIDE) [Concomitant]
  4. ACETAMINOPHEN [Concomitant]
  5. RISEDRONATE (RISEDRONIC ACID) [Concomitant]
  6. SIMVASTATIN [Concomitant]
  7. MORPHINE SULFATE [Concomitant]

REACTIONS (3)
  - BIPOLAR DISORDER [None]
  - CONDITION AGGRAVATED [None]
  - DRUG INEFFECTIVE [None]
